FAERS Safety Report 15412835 (Version 1)
Quarter: 2018Q3

REPORT INFORMATION
  Report Type: Spontaneous
  Country: MX (occurrence: MX)
  Receive Date: 20180921
  Receipt Date: 20180921
  Transmission Date: 20181010
  Serious: Yes (Other)
  Sender: FDA-Public Use
  Company Number: MX-ROCHE-2187443

PATIENT
  Age: 52 Year
  Sex: Female
  Weight: 57 kg

DRUGS (2)
  1. HERCEPTIN [Suspect]
     Active Substance: TRASTUZUMAB
     Indication: HER-2 POSITIVE BREAST CANCER
     Dosage: 11 CYCLES APPLIED
     Route: 058
     Dates: start: 20171009, end: 20180110
  2. HERCEPTIN [Suspect]
     Active Substance: TRASTUZUMAB
     Dosage: TREATMENT SUSPENDED
     Route: 058
     Dates: start: 20180117, end: 20180725

REACTIONS (2)
  - Cardiotoxicity [Unknown]
  - Ventricular hypokinesia [Unknown]

NARRATIVE: CASE EVENT DATE: 20180822
